FAERS Safety Report 25360732 (Version 1)
Quarter: 2025Q2

REPORT INFORMATION
  Report Type: Spontaneous
  Country: ES (occurrence: ES)
  Receive Date: 20250527
  Receipt Date: 20250527
  Transmission Date: 20250716
  Serious: Yes (Hospitalization, Other)
  Sender: CELLTRION
  Company Number: ES-ROCHE-10000137840

PATIENT

DRUGS (18)
  1. RITUXIMAB [Suspect]
     Active Substance: RITUXIMAB
     Indication: High-grade B-cell lymphoma
     Route: 042
     Dates: start: 20240828
  2. RITUXIMAB [Suspect]
     Active Substance: RITUXIMAB
     Route: 042
     Dates: start: 20241030
  3. RITUXIMAB [Suspect]
     Active Substance: RITUXIMAB
     Route: 042
     Dates: start: 20240828
  4. GOLCADOMIDE [Suspect]
     Active Substance: GOLCADOMIDE
     Indication: High-grade B-cell lymphoma
     Route: 048
     Dates: start: 20240828
  5. CYCLOPHOSPHAMIDE [Suspect]
     Active Substance: CYCLOPHOSPHAMIDE
     Indication: High-grade B-cell lymphoma
     Route: 042
     Dates: start: 20240828
  6. CYCLOPHOSPHAMIDE [Suspect]
     Active Substance: CYCLOPHOSPHAMIDE
     Route: 042
     Dates: start: 20241030
  7. DOXORUBICIN [Suspect]
     Active Substance: DOXORUBICIN
     Indication: High-grade B-cell lymphoma
     Route: 042
     Dates: start: 20240828
  8. DOXORUBICIN [Suspect]
     Active Substance: DOXORUBICIN
     Route: 042
     Dates: start: 20241030
  9. PREDNISONE [Suspect]
     Active Substance: PREDNISONE
     Indication: High-grade B-cell lymphoma
     Route: 048
     Dates: start: 20240829
  10. VINCRISTINE [Suspect]
     Active Substance: VINCRISTINE
     Indication: High-grade B-cell lymphoma
     Route: 042
     Dates: start: 20240828
  11. PREDNISOLONE [Suspect]
     Active Substance: PREDNISOLONE
     Indication: High-grade B-cell lymphoma
     Route: 042
     Dates: start: 20240828
  12. APIXABAN [Suspect]
     Active Substance: APIXABAN
     Indication: High-grade B-cell lymphoma
     Route: 048
     Dates: start: 20240828
  13. PRIMPERAN [Concomitant]
     Active Substance: METOCLOPRAMIDE HYDROCHLORIDE
     Dates: start: 20240828
  14. OMEPRAZOLE [Concomitant]
     Active Substance: OMEPRAZOLE
     Dates: start: 20240919
  15. CODEINE PHOSPHATE [Concomitant]
     Active Substance: CODEINE PHOSPHATE
     Indication: Cough
     Route: 048
     Dates: start: 20241010, end: 20241025
  16. NEULASTA [Concomitant]
     Active Substance: PEGFILGRASTIM
     Dates: start: 20241031, end: 20241031
  17. ERYTHROPOIETIN [Concomitant]
     Active Substance: ERYTHROPOIETIN
     Indication: Anaemia
     Route: 058
     Dates: start: 20241101
  18. LOPERAMIDE [Concomitant]
     Active Substance: LOPERAMIDE
     Indication: Diarrhoea
     Route: 048
     Dates: start: 20241105, end: 20241111

REACTIONS (1)
  - Gastrointestinal haemorrhage [Recovered/Resolved]

NARRATIVE: CASE EVENT DATE: 20241108
